FAERS Safety Report 5404247-7 (Version None)
Quarter: 2007Q3

REPORT INFORMATION
  Report Type: 
  Country: None (occurrence: None)
  Receive Date: 20070802
  Receipt Date: 20070725
  Transmission Date: 20080115
  Serious: Yes (Other)
  Sender: FDA-Public Use
  Company Number: HQWYE234226JUL07

PATIENT

DRUGS (2)
  1. EFFEXOR XR [Suspect]
     Indication: PANIC DISORDER
     Route: 064
  2. EFFEXOR XR [Suspect]
     Route: 064

REACTIONS (2)
  - DRUG EXPOSURE DURING PREGNANCY [None]
  - THYROID DISORDER [None]
